FAERS Safety Report 7553363-2 (Version None)
Quarter: 2011Q2

REPORT INFORMATION
  Report Type: 
  Country: None (occurrence: None)
  Receive Date: 20110617
  Receipt Date: 20110316
  Transmission Date: 20111010
  Serious: No
  Sender: FDA-Public Use
  Company Number: A0908043A

PATIENT
  Age: 65 Year
  Sex: Male
  Weight: 119.1 kg

DRUGS (7)
  1. IMMUNE GLOBULIN INTRAVENOUS (HUMAN) [Concomitant]
  2. METOPROLOL TARTRATE [Concomitant]
  3. LIPITOR [Concomitant]
  4. ASPIRIN [Concomitant]
  5. PROMACTA [Suspect]
     Indication: IDIOPATHIC THROMBOCYTOPENIC PURPURA
     Dosage: 50MG PER DAY
     Route: 048
  6. CORTICOSTEROIDS [Concomitant]
  7. UNKNOWN [Concomitant]

REACTIONS (4)
  - PLATELET COUNT INCREASED [None]
  - PLATELET COUNT ABNORMAL [None]
  - SPLENECTOMY [None]
  - INCORRECT DOSE ADMINISTERED [None]
